FAERS Safety Report 11250932 (Version 1)
Quarter: 2015Q3

REPORT INFORMATION
  Report Type: Spontaneous
  Country: US (occurrence: US)
  Receive Date: 20150708
  Receipt Date: 20150708
  Transmission Date: 20151125
  Serious: No
  Sender: FDA-Public Use
  Company Number: US-ELI_LILLY_AND_COMPANY-US201105008018

PATIENT
  Sex: Female

DRUGS (2)
  1. PROZAC WEEKLY [Suspect]
     Active Substance: FLUOXETINE HYDROCHLORIDE
     Indication: PAIN
     Dosage: 10 MG, UNK
  2. PROZAC WEEKLY [Suspect]
     Active Substance: FLUOXETINE HYDROCHLORIDE
     Dosage: 5 MG, UNK

REACTIONS (5)
  - Fatigue [Unknown]
  - Energy increased [Unknown]
  - Off label use [Unknown]
  - Drug dose omission [Unknown]
  - Adverse event [Unknown]
